FAERS Safety Report 8518388-9 (Version None)
Quarter: 2012Q3

REPORT INFORMATION
  Report Type: 
  Country: None (occurrence: None)
  Receive Date: 20120718
  Receipt Date: 20120713
  Transmission Date: 20120928
  Serious: Yes (Hospitalization)
  Sender: FDA-Public Use
  Company Number: GB-GLAXOSMITHKLINE-A0982181A

PATIENT
  Age: 38 Year
  Sex: Male

DRUGS (7)
  1. ACETAMINOPHEN AND CODEINE PHOSPHATE [Concomitant]
  2. PROPRANOLOL [Concomitant]
  3. HYDROMOL [Concomitant]
  4. NICOTINE POLACRILEX [Suspect]
     Indication: SMOKING CESSATION THERAPY
     Route: 002
  5. OILATUM [Concomitant]
  6. BALNEUM [Concomitant]
  7. NICORETTE [Suspect]
     Indication: SMOKING CESSATION THERAPY
     Route: 062
     Dates: start: 20120413

REACTIONS (1)
  - PSORIASIS [None]
